FAERS Safety Report 24314138 (Version 1)
Quarter: 2024Q3

REPORT INFORMATION
  Report Type: Spontaneous
  Country: ES (occurrence: ES)
  Receive Date: 20240912
  Receipt Date: 20240912
  Transmission Date: 20241016
  Serious: Yes (Death, Other)
  Sender: MERCK
  Company Number: ES-009507513-2409ESP002480

PATIENT
  Age: 41 Year
  Sex: Male

DRUGS (1)
  1. PEMBROLIZUMAB [Suspect]
     Active Substance: PEMBROLIZUMAB
     Indication: Squamous cell carcinoma
     Dosage: FIRST SINGLE CYCLE, ONCE

REACTIONS (3)
  - Malignant neoplasm progression [Fatal]
  - Septic shock [Fatal]
  - Product use in unapproved indication [Unknown]
